FAERS Safety Report 6919837-X (Version None)
Quarter: 2010Q3

REPORT INFORMATION
  Report Type: 
  Country: None (occurrence: None)
  Receive Date: 20100810
  Receipt Date: 20100810
  Transmission Date: 20110219
  Serious: Yes (Hospitalization)
  Sender: FDA-Public Use
  Company Number: None

PATIENT
  Age: 62 Year
  Sex: Male
  Weight: 84 kg

DRUGS (1)
  1. DOXAZOSIN MESYLATE [Suspect]
     Indication: BENIGN PROSTATIC HYPERPLASIA
     Dosage: 2 MG HS PO
     Route: 048
     Dates: start: 20100216, end: 20100429

REACTIONS (4)
  - CONDITION AGGRAVATED [None]
  - DIZZINESS POSTURAL [None]
  - HEPATIC CIRRHOSIS [None]
  - ORTHOSTATIC HYPOTENSION [None]
